FAERS Safety Report 6849637-0 (Version None)
Quarter: 2010Q3

REPORT INFORMATION
  Report Type: 
  Country: None (occurrence: None)
  Receive Date: 20100716
  Receipt Date: 20071001
  Transmission Date: 20110219
  Serious: No
  Sender: FDA-Public Use
  Company Number: US-PFIZER INC-2007083437

PATIENT
  Sex: Male
  Weight: 111.4 kg

DRUGS (3)
  1. CHANTIX [Suspect]
     Indication: SMOKING CESSATION THERAPY
     Route: 048
     Dates: start: 20070919
  2. LEVOXYL [Concomitant]
  3. LEXAPRO [Concomitant]

REACTIONS (1)
  - FLATULENCE [None]
